FAERS Safety Report 4901069-8 (Version None)
Quarter: 2006Q1

REPORT INFORMATION
  Report Type: 
  Country: None (occurrence: None)
  Receive Date: 20060113
  Receipt Date: 20051130
  Transmission Date: 20060701
  Serious: No
  Sender: FDA-Public Use
  Company Number: 2005SP004193

PATIENT
  Age: 59 Year
  Sex: Female

DRUGS (1)
  1. LUNESTA [Suspect]
     Indication: INSOMNIA
     Dosage: 1 MG;HS;ORAL
     Route: 048
     Dates: start: 20051028, end: 20051028

REACTIONS (3)
  - HALLUCINATION [None]
  - MEMORY IMPAIRMENT [None]
  - NIGHTMARE [None]
